FAERS Safety Report 25779446 (Version 1)
Quarter: 2025Q3

REPORT INFORMATION
  Report Type: Spontaneous
  Country: GB (occurrence: GB)
  Receive Date: 20250909
  Receipt Date: 20250909
  Transmission Date: 20251021
  Serious: Yes (Hospitalization)
  Sender: MYLAN
  Company Number: GB-MYLANLABS-2025M1074861

PATIENT
  Sex: Female

DRUGS (2)
  1. CLOZARIL [Suspect]
     Active Substance: CLOZAPINE
     Indication: Schizophrenia
     Dates: start: 20010701, end: 20250815
  2. CLOZARIL [Suspect]
     Active Substance: CLOZAPINE

REACTIONS (3)
  - Constipation [Recovered/Resolved]
  - Bowel movement irregularity [Unknown]
  - Contraindicated product administered [Unknown]
